FAERS Safety Report 9773748 (Version 1)
Quarter: 2013Q4

REPORT INFORMATION
  Report Type: Spontaneous
  Country: FR (occurrence: FR)
  Receive Date: 20131219
  Receipt Date: 20131219
  Transmission Date: 20140711
  Serious: Yes (Hospitalization)
  Sender: FDA-Public Use
  Company Number: FR-US-EMD SERONO, INC.-7256839

PATIENT
  Sex: Female

DRUGS (4)
  1. GONAL-F [Suspect]
     Indication: IN VITRO FERTILISATION
     Dosage: 1 DOSAGE FORM
     Route: 058
     Dates: start: 20130621, end: 20130627
  2. GONAL-F [Suspect]
     Dosage: 1 DOSAGE FORM
     Route: 058
     Dates: start: 20130627, end: 20130630
  3. OVITRELLE [Suspect]
     Indication: IN VITRO FERTILISATION
     Route: 058
     Dates: start: 20130702
  4. DECAPEPTYL /00486501/ [Suspect]
     Indication: IN VITRO FERTILISATION
     Route: 030
     Dates: start: 201306

REACTIONS (3)
  - Ovarian hyperstimulation syndrome [Recovered/Resolved]
  - Pleural effusion [Recovered/Resolved]
  - Ascites [Recovered/Resolved]
